FAERS Safety Report 16801352 (Version 1)
Quarter: 2019Q3

REPORT INFORMATION
  Report Type: Spontaneous
  Country: US (occurrence: US)
  Receive Date: 20190912
  Receipt Date: 20190912
  Transmission Date: 20191005
  Serious: Yes (Hospitalization, Other)
  Sender: FDA-Public Use
  Company Number: US-BRACCO-2019US04513

PATIENT
  Age: 50 Year
  Sex: Male

DRUGS (1)
  1. PROHANCE [Suspect]
     Active Substance: GADOTERIDOL
     Indication: NUCLEAR MAGNETIC RESONANCE IMAGING
     Dosage: UNK UNK, SINGLE
     Dates: start: 2019, end: 2019

REACTIONS (3)
  - Syncope [Unknown]
  - Sensory loss [Unknown]
  - Paralysis [Unknown]

NARRATIVE: CASE EVENT DATE: 2019
